FAERS Safety Report 7009527-X (Version None)
Quarter: 2010Q3

REPORT INFORMATION
  Report Type: 
  Country: None (occurrence: None)
  Receive Date: 20100923
  Receipt Date: 20100916
  Transmission Date: 20110219
  Serious: Yes (Hospitalization, Other)
  Sender: FDA-Public Use
  Company Number: PHFR2010GB02522

PATIENT
  Sex: Female

DRUGS (2)
  1. CLOZARIL [Suspect]
     Indication: SCHIZOPHRENIA, PARANOID TYPE
     Dosage: 100 MG MANE + 450 MG NOCTE
     Route: 048
     Dates: start: 19981103
  2. FLUOXETINE [Concomitant]
     Indication: DEPRESSION
     Dosage: 20 MG MANE

REACTIONS (2)
  - BREAST CANCER [None]
  - MALIGNANT TUMOUR EXCISION [None]
